FAERS Safety Report 8339565-6 (Version None)
Quarter: 2012Q2

REPORT INFORMATION
  Report Type: 
  Country: None (occurrence: None)
  Receive Date: 20120507
  Receipt Date: 20120501
  Transmission Date: 20120825
  Serious: Yes (Other)
  Sender: FDA-Public Use
  Company Number: PHEH2012US009243

PATIENT
  Sex: Female

DRUGS (1)
  1. ZOMETA [Suspect]
     Indication: BREAST CANCER METASTATIC
     Route: 042
     Dates: start: 20100404, end: 20110614

REACTIONS (8)
  - ALVEOLAR OSTEITIS [None]
  - PAIN [None]
  - EATING DISORDER [None]
  - OSTEONECROSIS OF JAW [None]
  - NERVE INJURY [None]
  - SWELLING [None]
  - DISCOMFORT [None]
  - HYPOAESTHESIA [None]
